FAERS Safety Report 7080681-7 (Version None)
Quarter: 2010Q4

REPORT INFORMATION
  Report Type: 
  Country: None (occurrence: None)
  Receive Date: 20101103
  Receipt Date: 20101025
  Transmission Date: 20110411
  Serious: Yes (Hospitalization)
  Sender: FDA-Public Use
  Company Number: FR-ASTRAZENECA-2010SE51271

PATIENT
  Age: 63 Year
  Sex: Male

DRUGS (8)
  1. CRESTOR [Suspect]
     Route: 048
     Dates: start: 20100817, end: 20100822
  2. ROVAMYCINE [Suspect]
     Dosage: 4.5 KIU, DAILY
     Route: 042
     Dates: start: 20100817, end: 20100820
  3. AMOXICILLINE-CLAVULANIQUE ACID SANDOZ [Suspect]
     Route: 042
     Dates: start: 20100817, end: 20100823
  4. TEGRETOL [Suspect]
     Route: 048
     Dates: end: 20100822
  5. PARACETAMOL PANPHARMA [Suspect]
     Route: 042
     Dates: start: 20100817, end: 20100822
  6. GLUCOPHAGE [Concomitant]
  7. AMAREL [Concomitant]
  8. TAHOR [Concomitant]

REACTIONS (1)
  - HEPATITIS CHOLESTATIC [None]
